FAERS Safety Report 23567544 (Version 1)
Quarter: 2024Q1

REPORT INFORMATION
  Report Type: Spontaneous
  Country: US (occurrence: US)
  Receive Date: 20240226
  Receipt Date: 20240226
  Transmission Date: 20240410
  Serious: Yes (Other)
  Sender: FDA-Public Use
  Company Number: US-ORGANON-O2402USA001966

PATIENT
  Sex: Female

DRUGS (1)
  1. NEXPLANON [Suspect]
     Active Substance: ETONOGESTREL
     Dosage: 1 IMPLANT
     Route: 059

REACTIONS (5)
  - Pregnancy with implant contraceptive [Unknown]
  - Unintended pregnancy [Unknown]
  - Implant site bruising [Unknown]
  - Vomiting [Unknown]
  - Breast tenderness [Unknown]
